FAERS Safety Report 19048511 (Version 1)
Quarter: 2021Q1

REPORT INFORMATION
  Report Type: Spontaneous
  Country: GR (occurrence: GR)
  Receive Date: 20210323
  Receipt Date: 20210323
  Transmission Date: 20210420
  Serious: Yes (Hospitalization)
  Sender: FDA-Public Use
  Company Number: GR-009507513-2103GRC005643

PATIENT
  Sex: Female
  Weight: 60 kg

DRUGS (45)
  1. CANCIDAS [Suspect]
     Active Substance: CASPOFUNGIN ACETATE
     Indication: NON-HODGKIN^S LYMPHOMA
  2. LOSEC [Suspect]
     Active Substance: OMEPRAZOLE
     Indication: DIFFUSE LARGE B-CELL LYMPHOMA
  3. LOSEC [Suspect]
     Active Substance: OMEPRAZOLE
     Indication: LEUKOPENIA
  4. VALTREX [Suspect]
     Active Substance: VALACYCLOVIR HYDROCHLORIDE
     Indication: DIFFUSE LARGE B-CELL LYMPHOMA
  5. VALTREX [Suspect]
     Active Substance: VALACYCLOVIR HYDROCHLORIDE
     Indication: NON-HODGKIN^S LYMPHOMA
  6. NORVASC [Suspect]
     Active Substance: AMLODIPINE BESYLATE
     Indication: DIFFUSE LARGE B-CELL LYMPHOMA
  7. LASIX [Suspect]
     Active Substance: FUROSEMIDE
     Indication: DIFFUSE LARGE B-CELL LYMPHOMA
  8. LOSEC [Suspect]
     Active Substance: OMEPRAZOLE
     Indication: HYPERTENSION
  9. ALDACTONE [Suspect]
     Active Substance: SPIRONOLACTONE
     Indication: ANAEMIA
  10. MABTHERA [Suspect]
     Active Substance: RITUXIMAB
     Indication: DIFFUSE LARGE B-CELL LYMPHOMA
  11. VEPESID [Suspect]
     Active Substance: ETOPOSIDE
     Indication: NON-HODGKIN^S LYMPHOMA
  12. CUBICIN [Suspect]
     Active Substance: DAPTOMYCIN
     Indication: HYPERTENSION
  13. CANCIDAS [Suspect]
     Active Substance: CASPOFUNGIN ACETATE
     Indication: HYPERTENSION
  14. LOSEC [Suspect]
     Active Substance: OMEPRAZOLE
     Indication: ANAEMIA
     Dosage: UNK
  15. ALDACTONE [Suspect]
     Active Substance: SPIRONOLACTONE
     Indication: LEUKOPENIA
     Dosage: UNK
  16. NORVASC [Suspect]
     Active Substance: AMLODIPINE BESYLATE
     Indication: HYPERTENSION
  17. VEPESID [Suspect]
     Active Substance: ETOPOSIDE
     Indication: ANAEMIA
  18. VEPESID [Suspect]
     Active Substance: ETOPOSIDE
     Indication: DIFFUSE LARGE B-CELL LYMPHOMA
  19. CUBICIN [Suspect]
     Active Substance: DAPTOMYCIN
     Indication: LEUKOPENIA
     Dosage: UNK
  20. CUBICIN [Suspect]
     Active Substance: DAPTOMYCIN
     Indication: ANAEMIA
  21. LASIX [Suspect]
     Active Substance: FUROSEMIDE
     Indication: NON-HODGKIN^S LYMPHOMA
  22. LASIX [Suspect]
     Active Substance: FUROSEMIDE
     Indication: HYPERTENSION
  23. LOSEC [Suspect]
     Active Substance: OMEPRAZOLE
     Indication: NON-HODGKIN^S LYMPHOMA
  24. MABTHERA [Suspect]
     Active Substance: RITUXIMAB
     Indication: ANAEMIA
  25. VALTREX [Suspect]
     Active Substance: VALACYCLOVIR HYDROCHLORIDE
     Indication: LEUKOPENIA
  26. CANCIDAS [Suspect]
     Active Substance: CASPOFUNGIN ACETATE
     Indication: DIFFUSE LARGE B-CELL LYMPHOMA
  27. LASIX [Suspect]
     Active Substance: FUROSEMIDE
     Indication: ANAEMIA
  28. ALDACTONE [Suspect]
     Active Substance: SPIRONOLACTONE
     Indication: DIFFUSE LARGE B-CELL LYMPHOMA
  29. MABTHERA [Suspect]
     Active Substance: RITUXIMAB
     Indication: HYPERTENSION
  30. NORVASC [Suspect]
     Active Substance: AMLODIPINE BESYLATE
     Indication: NON-HODGKIN^S LYMPHOMA
  31. VEPESID [Suspect]
     Active Substance: ETOPOSIDE
     Indication: HYPERTENSION
     Dosage: UNK
  32. ALDACTONE [Suspect]
     Active Substance: SPIRONOLACTONE
     Indication: HYPERTENSION
  33. MABTHERA [Suspect]
     Active Substance: RITUXIMAB
     Indication: NON-HODGKIN^S LYMPHOMA
  34. VALTREX [Suspect]
     Active Substance: VALACYCLOVIR HYDROCHLORIDE
     Indication: ANAEMIA
  35. NORVASC [Suspect]
     Active Substance: AMLODIPINE BESYLATE
     Indication: LEUKOPENIA
     Dosage: UNK
  36. NORVASC [Suspect]
     Active Substance: AMLODIPINE BESYLATE
     Indication: ANAEMIA
  37. CANCIDAS [Suspect]
     Active Substance: CASPOFUNGIN ACETATE
     Indication: ANAEMIA
  38. VALTREX [Suspect]
     Active Substance: VALACYCLOVIR HYDROCHLORIDE
     Indication: HYPERTENSION
     Dosage: UNK
  39. VEPESID [Suspect]
     Active Substance: ETOPOSIDE
     Indication: LEUKOPENIA
  40. CUBICIN [Suspect]
     Active Substance: DAPTOMYCIN
     Indication: NON-HODGKIN^S LYMPHOMA
  41. CUBICIN [Suspect]
     Active Substance: DAPTOMYCIN
     Indication: DIFFUSE LARGE B-CELL LYMPHOMA
  42. CANCIDAS [Suspect]
     Active Substance: CASPOFUNGIN ACETATE
     Indication: LEUKOPENIA
     Dosage: UNK
  43. LASIX [Suspect]
     Active Substance: FUROSEMIDE
     Indication: LEUKOPENIA
     Dosage: UNK
  44. ALDACTONE [Suspect]
     Active Substance: SPIRONOLACTONE
     Indication: NON-HODGKIN^S LYMPHOMA
  45. MABTHERA [Suspect]
     Active Substance: RITUXIMAB
     Indication: LEUKOPENIA
     Dosage: UNK

REACTIONS (2)
  - Off label use [Unknown]
  - Neoplasm progression [Unknown]
